FAERS Safety Report 9644165 (Version 2)
Quarter: 2013Q4

REPORT INFORMATION
  Report Type: Report from Study
  Country: US (occurrence: US)
  Receive Date: 20131024
  Receipt Date: 20131105
  Transmission Date: 20140711
  Serious: Yes (Hospitalization)
  Sender: FDA-Public Use
  Company Number: US-AMGEN-USACT2013073638

PATIENT
  Age: 17 Year
  Sex: Female

DRUGS (12)
  1. DENOSUMAB [Suspect]
     Indication: BONE GIANT CELL TUMOUR
     Dosage: 120 MG, Q4WK
     Route: 030
     Dates: start: 20120209, end: 20130919
  2. CALCIUM VITAMIN D [Concomitant]
     Dosage: 400 IU, QD
     Route: 048
     Dates: start: 20120214
  3. FOLIC ACID [Concomitant]
     Dosage: 1 MG, QD
     Route: 048
     Dates: start: 20120214, end: 20120221
  4. SENOKOT                            /00142201/ [Concomitant]
     Dosage: UNK UNK, QHS
     Route: 048
     Dates: start: 20120628
  5. KEPPRA [Concomitant]
     Dosage: 750 MG, QD
     Route: 048
     Dates: start: 20120221, end: 20120715
  6. PEPCID                             /00305201/ [Concomitant]
     Dosage: 20 MG, AS NECESSARY
     Route: 048
     Dates: start: 20130114
  7. MORPHINE SULFATE [Concomitant]
     Dosage: 60 MG, BID
     Route: 048
     Dates: start: 20120402
  8. NEURONTIN [Concomitant]
     Dosage: 900 MG, TID
     Route: 048
     Dates: start: 201112
  9. MS CONTIN DAINIPPO [Concomitant]
  10. MORPHINE [Concomitant]
  11. METHADONE [Concomitant]
  12. PROZAC [Concomitant]

REACTIONS (4)
  - Cholecystitis [Recovered/Resolved]
  - Vomiting [Recovered/Resolved]
  - Abdominal pain [Recovered/Resolved]
  - Nausea [Recovered/Resolved]
